FAERS Safety Report 23291665 (Version 1)
Quarter: 2023Q4

REPORT INFORMATION
  Report Type: Spontaneous
  Country: US (occurrence: US)
  Receive Date: 20231213
  Receipt Date: 20231213
  Transmission Date: 20240109
  Serious: No
  Sender: FDA-Public Use
  Company Number: US-ABBVIE-2301197US

PATIENT
  Age: 57 Year
  Sex: Female

DRUGS (2)
  1. BOTOX [Suspect]
     Active Substance: ONABOTULINUMTOXINA
     Indication: Bell^s palsy
     Dosage: TIME INTERVAL: AS NECESSARY
     Route: 030
     Dates: start: 20221213, end: 20221213
  2. BOTOX [Suspect]
     Active Substance: ONABOTULINUMTOXINA
     Indication: Bell^s palsy
     Dosage: TIME INTERVAL: AS NECESSARY
     Route: 030
     Dates: start: 20221213, end: 20221213

REACTIONS (2)
  - Keratopathy [Not Recovered/Not Resolved]
  - Multiple use of single-use product [Unknown]

NARRATIVE: CASE EVENT DATE: 20221226
